FAERS Safety Report 6784073-7 (Version None)
Quarter: 2010Q2

REPORT INFORMATION
  Report Type: 
  Country: None (occurrence: None)
  Receive Date: 20100618
  Receipt Date: 20100603
  Transmission Date: 20101027
  Serious: Yes (Other)
  Sender: FDA-Public Use
  Company Number: US-1182121

PATIENT
  Sex: Male
  Weight: 127.0072 kg

DRUGS (2)
  1. CIPRODEX [Suspect]
     Indication: EAR PAIN
     Dosage: BID X7D AURICULAR
     Route: 001
  2. AMOXICILLIN AND CLAVULANATE POTASSIUM [Concomitant]

REACTIONS (2)
  - HYPOACUSIS [None]
  - TINNITUS [None]
